FAERS Safety Report 19361635 (Version 1)
Quarter: 2021Q2

REPORT INFORMATION
  Report Type: Spontaneous
  Country: US (occurrence: US)
  Receive Date: 20210603
  Receipt Date: 20210603
  Transmission Date: 20210717
  Serious: No
  Sender: FDA-Public Use
  Company Number: US-ROCHE-2765357

PATIENT
  Sex: Male
  Weight: 89.44 kg

DRUGS (6)
  1. OCREVUS [Suspect]
     Active Substance: OCRELIZUMAB
     Indication: RELAPSING-REMITTING MULTIPLE SCLEROSIS
     Dosage: YES
     Route: 042
     Dates: start: 20210205
  2. COPAXONE [Concomitant]
     Active Substance: GLATIRAMER ACETATE
  3. ACETAMINOPHEN. [Concomitant]
     Active Substance: ACETAMINOPHEN
     Indication: HEADACHE
     Dosage: TAKES TWO AS NEEDED FOR HEADACHE
     Route: 048
  4. AVONEX [Concomitant]
     Active Substance: INTERFERON BETA-1A
  5. BETASERON [Concomitant]
     Active Substance: INTERFERON BETA-1B
  6. TECFIDERA [Concomitant]
     Active Substance: DIMETHYL FUMARATE

REACTIONS (1)
  - Headache [Not Recovered/Not Resolved]
